FAERS Safety Report 19518429 (Version 1)
Quarter: 2021Q3

REPORT INFORMATION
  Report Type: Spontaneous
  Country: US (occurrence: US)
  Receive Date: 20210709
  Receipt Date: 20210709
  Transmission Date: 20211014
  Serious: No
  Sender: FDA-Public Use
  Company Number: None

PATIENT
  Age: 71 Year
  Sex: Female
  Weight: 72 kg

DRUGS (12)
  1. ATIVAN 1MG [Concomitant]
  2. RED YEAST RICE [Concomitant]
     Active Substance: DIETARY SUPPLEMENT
  3. CALCIUM/VITAMIN D [Concomitant]
     Active Substance: CALCIUM\VITAMIN D
  4. MAGNESIUM [Concomitant]
     Active Substance: MAGNESIUM
  5. FISH OIL [Concomitant]
     Active Substance: FISH OIL
  6. LETROZOLE. [Suspect]
     Active Substance: LETROZOLE
     Indication: BREAST CANCER
     Route: 048
     Dates: start: 20210227, end: 20210709
  7. VITAMIN C 500MG [Concomitant]
  8. ZINC. [Concomitant]
     Active Substance: ZINC
  9. EVEROLIMUS. [Suspect]
     Active Substance: EVEROLIMUS
     Indication: BREAST CANCER
     Route: 048
     Dates: start: 20210227, end: 20210709
  10. DEXAMETHASONE SOLUTION 1MG [Concomitant]
  11. COENZYME Q?10 [Concomitant]
  12. ALEVE [Concomitant]
     Active Substance: NAPROXEN SODIUM

REACTIONS (1)
  - Disease progression [None]

NARRATIVE: CASE EVENT DATE: 20210709
